FAERS Safety Report 18282974 (Version 1)
Quarter: 2020Q3

REPORT INFORMATION
  Report Type: Spontaneous
  Country: CH (occurrence: CH)
  Receive Date: 20200918
  Receipt Date: 20200918
  Transmission Date: 20201103
  Serious: Yes (Other)
  Sender: FDA-Public Use
  Company Number: CH-FRESENIUS KABI-FK202009488

PATIENT
  Age: 30 Year
  Sex: Female

DRUGS (2)
  1. IBUPROFEN. [Concomitant]
     Active Substance: IBUPROFEN
     Indication: MIGRAINE
     Route: 065
  2. PARACETAMOL (MANUFACTURER UNKNOWN) [Suspect]
     Active Substance: ACETAMINOPHEN
     Indication: PRODUCT USED FOR UNKNOWN INDICATION
     Dosage: 1G PARACETAMOL, TAKEN AT TIME INTERVALS OF 6 HOURS (CUMULATIVE DAILY DOSE OF 3G)
     Route: 065

REACTIONS (2)
  - Fixed eruption [Recovering/Resolving]
  - Drug interaction [Recovering/Resolving]
